FAERS Safety Report 9468802 (Version 2)
Quarter: 2013Q4

REPORT INFORMATION
  Report Type: Spontaneous
  Country: US (occurrence: None)
  Receive Date: 20130814
  Receipt Date: 20131010
  Transmission Date: 20140711
  Serious: Yes (Life-Threatening, Hospitalization, Other)
  Sender: FDA-Public Use
  Company Number: 7227747

PATIENT
  Age: 61 Year
  Sex: Female

DRUGS (9)
  1. LEVOTHYROXINE [Suspect]
     Indication: PRODUCT USED FOR UNKNOWN INDICATION
  2. DENOSUMAB [Suspect]
     Indication: PRODUCT USED FOR UNKNOWN INDICATION
  3. AMLODIPINE (AMLODIPINE) [Concomitant]
  4. ASPIRIN (ACETYLSALICYLIC ACID) [Concomitant]
  5. METOPROLOL (METOPROLOL) [Concomitant]
  6. CALCITRIOL (CALCITRIOL) [Concomitant]
  7. ANASTRAZOLE (ANASTROZOLE) [Concomitant]
  8. GLIPIZIDE (GLIPIZIDE) [Concomitant]
  9. ATORVASTATIN (ATORVASTATIN) [Concomitant]

REACTIONS (6)
  - Hypocalcaemia [None]
  - Electrocardiogram QT prolonged [None]
  - Acute prerenal failure [None]
  - Fall [None]
  - Tremor [None]
  - Diarrhoea [None]
